FAERS Safety Report 7647670-2 (Version None)
Quarter: 2011Q3

REPORT INFORMATION
  Report Type: 
  Country: None (occurrence: None)
  Receive Date: 20110801
  Receipt Date: 20110801
  Transmission Date: 20111222
  Serious: Yes (Other)
  Sender: FDA-Public Use
  Company Number: None

PATIENT
  Age: 20 Year
  Sex: Female
  Weight: 56.699 kg

DRUGS (2)
  1. JARROWS METHYL-B12 [Concomitant]
     Indication: ASTHENIA
     Dosage: 5000 MCG
     Route: 060
     Dates: start: 20110110, end: 20110411
  2. JARROWS METHYL-B12 [Suspect]
     Indication: DEPRESSED MOOD
     Dosage: 1000 MCG
     Route: 060
     Dates: start: 20091015, end: 20100518

REACTIONS (4)
  - PARTNER STRESS [None]
  - ANGER [None]
  - PERSONALITY CHANGE [None]
  - HOSTILITY [None]
